FAERS Safety Report 24711710 (Version 1)
Quarter: 2024Q4

REPORT INFORMATION
  Report Type: Spontaneous
  Country: US (occurrence: None)
  Receive Date: 20241206
  Receipt Date: 20241206
  Transmission Date: 20250115
  Serious: Yes (Hospitalization)
  Sender: Public
  Company Number: None

PATIENT
  Age: 76 Year
  Sex: Male
  Weight: 80.1 kg

DRUGS (8)
  1. LAGEVRIO [Suspect]
     Active Substance: MOLNUPIRAVIR
     Indication: COVID-19
     Dosage: FREQUENCY : TWICE A DAY;?
     Route: 048
     Dates: start: 20241111, end: 20241113
  2. CARVEDILOL [Concomitant]
     Active Substance: CARVEDILOL
  3. AMLODIPINE [Concomitant]
     Active Substance: AMLODIPINE BESYLATE
  4. ASPIRIN [Concomitant]
     Active Substance: ASPIRIN
  5. ATORVASTATIN [Concomitant]
     Active Substance: ATORVASTATIN
  6. FINASTERIDE [Concomitant]
     Active Substance: FINASTERIDE
  7. LISINOPRIL [Concomitant]
     Active Substance: LISINOPRIL
  8. SILDENAFIL [Concomitant]
     Active Substance: SILDENAFIL

REACTIONS (4)
  - Syncope [None]
  - Fall [None]
  - Head injury [None]
  - Drug interaction [None]

NARRATIVE: CASE EVENT DATE: 20241113
